FAERS Safety Report 11081499 (Version 1)
Quarter: 2015Q2

REPORT INFORMATION
  Report Type: Spontaneous
  Country: US (occurrence: US)
  Receive Date: 20150501
  Receipt Date: 20150501
  Transmission Date: 20150821
  Serious: No
  Sender: FDA-Public Use
  Company Number: US-PFIZER INC-2015146403

PATIENT
  Sex: Female

DRUGS (2)
  1. EVISTA [Interacting]
     Active Substance: RALOXIFENE HYDROCHLORIDE
     Dosage: UNK
  2. ZOLOFT [Suspect]
     Active Substance: SERTRALINE HYDROCHLORIDE
     Dosage: 150 MG, DAILY

REACTIONS (2)
  - Drug ineffective [Recovered/Resolved]
  - Drug interaction [Recovered/Resolved]
